FAERS Safety Report 20642593 (Version 1)
Quarter: 2022Q1

REPORT INFORMATION
  Report Type: Other
  Country: CA (occurrence: CA)
  Receive Date: 20220328
  Receipt Date: 20220328
  Transmission Date: 20220423
  Serious: Yes (Other)
  Sender: FDA-Public Use
  Company Number: CA-APOTEX-2022AP005042

PATIENT
  Sex: Male

DRUGS (1)
  1. FINGOLIMOD [Suspect]
     Active Substance: FINGOLIMOD
     Indication: Product used for unknown indication
     Dosage: UNK
     Route: 065

REACTIONS (6)
  - Angina pectoris [Unknown]
  - Cardiac disorder [Unknown]
  - Fatigue [Unknown]
  - Heart rate irregular [Unknown]
  - Hypotension [Unknown]
  - Heart rate decreased [Unknown]
